FAERS Safety Report 15738517 (Version 3)
Quarter: 2019Q2

REPORT INFORMATION
  Report Type: Spontaneous
  Country: US (occurrence: US)
  Receive Date: 20181219
  Receipt Date: 20190531
  Transmission Date: 20190711
  Serious: No
  Sender: FDA-Public Use
  Company Number: US-PFIZER INC-2018517498

PATIENT
  Age: 13 Year
  Sex: Male

DRUGS (4)
  1. GENOTROPIN [Suspect]
     Active Substance: SOMATROPIN
     Dosage: 2.2 MG, ALTERNATE DAY
     Dates: start: 201701
  2. GENOTROPIN [Suspect]
     Active Substance: SOMATROPIN
     Dosage: 2.4 MG, ALTERNATE DAY
     Dates: start: 201701
  3. GENOTROPIN [Suspect]
     Active Substance: SOMATROPIN
     Dosage: 2.2 MG, (6 DAYS A WEEK)
     Dates: start: 20170206
  4. GENOTROPIN [Suspect]
     Active Substance: SOMATROPIN
     Dosage: 2.2 MG, 6 DAYS A WEEK
     Dates: start: 20170216

REACTIONS (8)
  - Blood thyroid stimulating hormone increased [Unknown]
  - Product dose omission [Unknown]
  - Chest pain [Unknown]
  - Product dose omission [Unknown]
  - Blood insulin increased [Unknown]
  - Device issue [Unknown]
  - Back pain [Unknown]
  - Device battery issue [Unknown]

NARRATIVE: CASE EVENT DATE: 20190519
